FAERS Safety Report 12654101 (Version 1)
Quarter: 2016Q3

REPORT INFORMATION
  Report Type: Spontaneous
  Country: US (occurrence: None)
  Receive Date: 20160815
  Receipt Date: 20160815
  Transmission Date: 20161109
  Serious: No
  Sender: FDA-Public Use
  Company Number: None

PATIENT
  Age: 57 Year
  Sex: Female
  Weight: 65.77 kg

DRUGS (10)
  1. TENS UNIT [Concomitant]
  2. BIOTIN [Concomitant]
     Active Substance: BIOTIN
  3. VITAMIN D [Concomitant]
     Active Substance: CHOLECALCIFEROL
  4. DAILY COMPLETE VITAMIN [Concomitant]
  5. KNEE BRACE [Concomitant]
  6. AMBIEN [Suspect]
     Active Substance: ZOLPIDEM TARTRATE
     Indication: INSOMNIA
     Dosage: 1 TABLET AT BEDTIME TAKEN BY MOUTH
     Route: 048
  7. HYDROCODONE [Concomitant]
     Active Substance: HYDROCODONE
  8. VITAMIN B12 [Concomitant]
     Active Substance: CYANOCOBALAMIN
  9. CYMBALTA [Concomitant]
     Active Substance: DULOXETINE HYDROCHLORIDE
  10. CALCIUM [Concomitant]
     Active Substance: CALCIUM

REACTIONS (3)
  - Somnambulism [None]
  - Abnormal behaviour [None]
  - Amnesia [None]

NARRATIVE: CASE EVENT DATE: 20150102
